FAERS Safety Report 25507825 (Version 1)
Quarter: 2025Q3

REPORT INFORMATION
  Report Type: Other
  Country: CA (occurrence: CA)
  Receive Date: 20250703
  Receipt Date: 20250703
  Transmission Date: 20251020
  Serious: Yes (Other)
  Sender: APOTEX
  Company Number: CA-PGRTD-001131138

PATIENT
  Age: 72 Year
  Sex: Female
  Weight: 63.49 kg

DRUGS (1)
  1. LOSARTAN [Suspect]
     Active Substance: LOSARTAN
     Indication: Blood pressure management
     Dosage: 50 MILLIGRAM, QD
     Route: 048

REACTIONS (4)
  - Myalgia [Recovered/Resolved]
  - Fatigue [Recovered/Resolved]
  - Diarrhoea [Recovered/Resolved]
  - Dizziness [Recovered/Resolved]
